FAERS Safety Report 9602834 (Version 4)
Quarter: 2013Q4

REPORT INFORMATION
  Report Type: Spontaneous
  Country: BR (occurrence: BR)
  Receive Date: 20131007
  Receipt Date: 20131224
  Transmission Date: 20140711
  Serious: Yes (Life-Threatening, Hospitalization)
  Sender: FDA-Public Use
  Company Number: BR-ROCHE-1284297

PATIENT
  Age: 8 Year
  Sex: Female
  Weight: 27.5 kg

DRUGS (7)
  1. ACTEMRA [Suspect]
     Indication: JUVENILE IDIOPATHIC ARTHRITIS
     Route: 042
     Dates: start: 20130916, end: 20130930
  2. PREDNISONE [Concomitant]
     Route: 048
     Dates: start: 20130927
  3. PREDNISONE [Concomitant]
     Route: 048
  4. OMEPRAZOLE [Concomitant]
     Route: 048
     Dates: start: 20130927
  5. CALCIUM CARBONATE [Concomitant]
     Route: 048
     Dates: start: 20130927
  6. VITAMIN C [Concomitant]
     Dosage: DOSE: 20 GTT
     Route: 048
     Dates: start: 20130927
  7. VITAMIN B COMPLEX [Concomitant]
     Dosage: DOSE: 20 GTT
     Route: 048
     Dates: start: 20130927

REACTIONS (5)
  - Histiocytosis haematophagic [Recovered/Resolved]
  - Nausea [Recovered/Resolved]
  - Vomiting [Recovered/Resolved]
  - Transaminases increased [Recovered/Resolved]
  - Serum ferritin increased [Recovered/Resolved]
